FAERS Safety Report 24538145 (Version 1)
Quarter: 2024Q4

REPORT INFORMATION
  Report Type: Spontaneous
  Country: FR (occurrence: FR)
  Receive Date: 20241023
  Receipt Date: 20241023
  Transmission Date: 20250115
  Serious: Yes (Death)
  Sender: ABBVIE
  Company Number: FR-ABBVIE-5974173

PATIENT
  Sex: Female

DRUGS (1)
  1. RISANKIZUMAB [Suspect]
     Active Substance: RISANKIZUMAB
     Indication: Crohn^s disease
     Route: 058
     Dates: end: 2024

REACTIONS (3)
  - Colorectal cancer [Fatal]
  - Metastases to bone [Fatal]
  - Drug ineffective [Not Recovered/Not Resolved]
